FAERS Safety Report 6554679-9 (Version None)
Quarter: 2010Q1

REPORT INFORMATION
  Report Type: 
  Country: None (occurrence: None)
  Receive Date: 20100127
  Receipt Date: 20100122
  Transmission Date: 20100710
  Serious: Yes (Hospitalization, Other)
  Sender: FDA-Public Use
  Company Number: TR-ROXANE LABORATORIES, INC.-2010-RO-00086RO

PATIENT
  Age: 38 Year
  Sex: Female

DRUGS (6)
  1. LAMOTRIGINE [Suspect]
     Indication: DEPRESSION
     Dosage: 25 MG
     Route: 048
  2. LAMOTRIGINE [Suspect]
     Dosage: 100 MG
  3. LAMOTRIGINE [Suspect]
     Dosage: 50 MG
  4. CITALOPRAM [Suspect]
     Indication: BIPOLAR II DISORDER
     Dosage: 20 MG
  5. OLANZAPINE [Suspect]
     Indication: BIPOLAR II DISORDER
     Dosage: 5 MG
     Route: 048
  6. LITHIUM [Concomitant]
     Indication: DEPRESSIVE SYMPTOM
     Dosage: 1200 MG

REACTIONS (3)
  - DEPRESSION [None]
  - DRUG INEFFECTIVE [None]
  - OBSESSIVE THOUGHTS [None]
